FAERS Safety Report 7958225-4 (Version None)
Quarter: 2011Q4

REPORT INFORMATION
  Report Type: 
  Country: None (occurrence: None)
  Receive Date: 20111205
  Receipt Date: 20111201
  Transmission Date: 20120403
  Serious: Yes (Hospitalization)
  Sender: FDA-Public Use
  Company Number: CH-ROCHE-1018342

PATIENT
  Age: 73 Year
  Sex: Female

DRUGS (6)
  1. MARCUMAR [Concomitant]
  2. AVASTIN [Suspect]
     Indication: PRODUCT USED FOR UNKNOWN INDICATION
     Route: 042
     Dates: start: 20110906, end: 20110906
  3. ACETAMINOPHEN [Concomitant]
  4. ELOXATIN [Suspect]
     Indication: PRODUCT USED FOR UNKNOWN INDICATION
     Dates: start: 20110906, end: 20110906
  5. FLUOROURACIL [Suspect]
     Indication: PRODUCT USED FOR UNKNOWN INDICATION
     Dates: start: 20110906, end: 20110906
  6. CAMPTOSAR [Suspect]
     Indication: PRODUCT USED FOR UNKNOWN INDICATION
     Dates: start: 20110906, end: 20110906

REACTIONS (2)
  - RENAL TUBULAR NECROSIS [None]
  - RENAL FAILURE [None]
